FAERS Safety Report 6519952-9 (Version None)
Quarter: 2009Q4

REPORT INFORMATION
  Report Type: 
  Country: None (occurrence: None)
  Receive Date: 20091229
  Receipt Date: 20091217
  Transmission Date: 20100525
  Serious: Yes (Hospitalization)
  Sender: FDA-Public Use
  Company Number: US-PFIZER INC-2006022843

PATIENT
  Sex: Female
  Weight: 106.14 kg

DRUGS (9)
  1. EPIRUBICIN HCL [Suspect]
     Indication: BREAST CANCER
     Dosage: 151.5 MG, EVERY 3 WEEKS
     Route: 042
     Dates: start: 20050819, end: 20051021
  2. FLUOROURACIL [Suspect]
     Indication: BREAST CANCER
     Dosage: 1010 MG, EVERY 3 WEEKS
     Route: 042
     Dates: start: 20050819, end: 20051021
  3. CYTOXAN [Suspect]
     Indication: BREAST CANCER
     Dosage: 1010 MG, EVERY 3 WEEKS
     Route: 042
     Dates: start: 20050819, end: 20051021
  4. TRASTUZUMAB [Suspect]
     Indication: BREAST CANCER
     Dosage: 196 MG WEEKLY
     Route: 042
     Dates: start: 20050819, end: 20060127
  5. TAXOTERE [Suspect]
     Indication: BREAST CANCER
     Dosage: 70.7 MG WEEKLY FOR 2 WEEKS
     Route: 042
     Dates: start: 20051111, end: 20060120
  6. XELODA [Suspect]
     Indication: BREAST CANCER
     Dosage: 1800 MG TWICE DAILY FOR 14 DAYS OUT OF 21 DAYS
     Route: 048
     Dates: start: 20051111, end: 20060126
  7. LOPERAMIDE [Concomitant]
     Route: 048
     Dates: start: 20050901
  8. MAALOX [Concomitant]
     Route: 048
     Dates: start: 20050930
  9. NEXIUM [Concomitant]
     Route: 048
     Dates: start: 20051021

REACTIONS (2)
  - CHEST PAIN [None]
  - DYSPNOEA [None]
